FAERS Safety Report 8343296-6 (Version None)
Quarter: 2012Q2

REPORT INFORMATION
  Report Type: 
  Country: None (occurrence: None)
  Receive Date: 20120508
  Receipt Date: 20120502
  Transmission Date: 20120825
  Serious: Yes (Other)
  Sender: FDA-Public Use
  Company Number: PHHY2012CN037390

PATIENT
  Age: 49 Year
  Sex: Male

DRUGS (3)
  1. PREDNISONE TAB [Suspect]
     Indication: IMMUNOSUPPRESSION
  2. MYCOPHENOLATE MOFETIL [Suspect]
     Indication: IMMUNOSUPPRESSION
  3. TACROLIMUS [Suspect]
     Indication: IMMUNOSUPPRESSION
     Dates: end: 20070101

REACTIONS (6)
  - HAEMATURIA [None]
  - KAPOSI'S SARCOMA [None]
  - URETERIC DILATATION [None]
  - HYDRONEPHROSIS [None]
  - RENAL PAIN [None]
  - RENAL IMPAIRMENT [None]
